FAERS Safety Report 9817833 (Version 1)
Quarter: 2013Q4

REPORT INFORMATION
  Report Type: Spontaneous
  Country: US (occurrence: None)
  Receive Date: 20131223
  Receipt Date: 20131223
  Transmission Date: 20140711
  Serious: No
  Sender: FDA-Public Use
  Company Number: 218570

PATIENT
  Age: 88 Year
  Sex: Female

DRUGS (2)
  1. PICATO GEL [Suspect]
     Indication: EXFOLIATIVE RASH
     Dates: start: 20120808
  2. PICATO GEL [Suspect]
     Indication: RASH
     Dates: start: 20120808

REACTIONS (5)
  - Throat irritation [None]
  - Cough [None]
  - Choking [None]
  - Increased upper airway secretion [None]
  - Off label use [None]
